FAERS Safety Report 12094282 (Version 1)
Quarter: 2016Q1

REPORT INFORMATION
  Report Type: Spontaneous
  Country: GB (occurrence: GB)
  Receive Date: 20160219
  Receipt Date: 20160219
  Transmission Date: 20160526
  Serious: Yes (Other)
  Sender: FDA-Public Use
  Company Number: GB-ASTRAZENECA-2016SE15451

PATIENT
  Age: 56 Year
  Sex: Male

DRUGS (16)
  1. METFORMIN [Concomitant]
     Active Substance: METFORMIN HYDROCHLORIDE
  2. DAPAGLIFLOZIN [Suspect]
     Active Substance: DAPAGLIFLOZIN
     Indication: INSULIN-REQUIRING TYPE 2 DIABETES MELLITUS
     Route: 048
     Dates: start: 20140328, end: 20160126
  3. BISOPROLOL [Concomitant]
     Active Substance: BISOPROLOL
  4. NEFOPAM [Concomitant]
     Active Substance: NEFOPAM
  5. NOVORAPID [Concomitant]
     Active Substance: INSULIN ASPART
  6. SILDENAFIL. [Concomitant]
     Active Substance: SILDENAFIL
  7. CLOPIDOGREL [Concomitant]
     Active Substance: CLOPIDOGREL BISULFATE
  8. LANSOPRAZOLE. [Concomitant]
     Active Substance: LANSOPRAZOLE
  9. PRAVASTATIN [Concomitant]
     Active Substance: PRAVASTATIN\PRAVASTATIN SODIUM
  10. LISINOPRIL. [Concomitant]
     Active Substance: LISINOPRIL
  11. NICORANDIL [Concomitant]
     Active Substance: NICORANDIL
  12. TRAMADOL. [Concomitant]
     Active Substance: TRAMADOL
  13. AMLODIPINE [Concomitant]
     Active Substance: AMLODIPINE BESYLATE
  14. LANTUS [Concomitant]
     Active Substance: INSULIN GLARGINE
  15. ASPIRIN. [Concomitant]
     Active Substance: ASPIRIN
  16. MST CONTINUS [Concomitant]
     Active Substance: MORPHINE SULFATE

REACTIONS (4)
  - Diabetic ketoacidosis [Recovered/Resolved]
  - Malaise [Recovered/Resolved]
  - Fatigue [Recovered/Resolved]
  - Thirst [Recovered/Resolved]

NARRATIVE: CASE EVENT DATE: 20160118
